FAERS Safety Report 9613640 (Version 2)
Quarter: 2013Q4

REPORT INFORMATION
  Report Type: Spontaneous
  Country: CA (occurrence: None)
  Receive Date: 20131008
  Receipt Date: 20131031
  Transmission Date: 20140711
  Serious: Yes (Life-Threatening, Hospitalization)
  Sender: FDA-Public Use
  Company Number: 2013ST000240

PATIENT
  Age: 68 Year
  Sex: Male
  Weight: 80 kg

DRUGS (9)
  1. METFORMIN [Suspect]
  2. AMLODIPINE [Suspect]
  3. ETHANOL [Suspect]
  4. ACETYLSALICYLIC ACID (ACETYLSALICYLIC ACID) [Concomitant]
  5. CLONAZEPAM (CLONAZEPAM) (CLONAZEPAM) [Concomitant]
  6. GLYBURIDE (GLIBENCLAMIDE) [Concomitant]
  7. IRBESARTAN (IRBESARTAN) [Concomitant]
  8. TAMSULOSIN (TAMSULOSIN) [Concomitant]
  9. VITAMIN B12 /00056201/ (CYANOCOBALAMIN) [Concomitant]

REACTIONS (8)
  - Intentional overdose [None]
  - Metabolic acidosis [None]
  - Suicide attempt [None]
  - Pallor [None]
  - Hyperhidrosis [None]
  - Haemodynamic instability [None]
  - Overdose [None]
  - Shock [None]
